FAERS Safety Report 18208467 (Version 1)
Quarter: 2020Q3

REPORT INFORMATION
  Report Type: Spontaneous
  Country: US (occurrence: US)
  Receive Date: 20200828
  Receipt Date: 20200828
  Transmission Date: 20201103
  Serious: Yes (Other)
  Sender: FDA-Public Use
  Company Number: US-SA-2020SA227259

PATIENT

DRUGS (2)
  1. DULCOLAX NOS [Suspect]
     Active Substance: BISACODYL OR DOCUSATE SODIUM
     Dosage: UNK
     Route: 054
  2. GLYCERIN [GLYCEROL] [Concomitant]
     Active Substance: GLYCERIN
     Dosage: UNK

REACTIONS (1)
  - Faeces hard [Unknown]
